FAERS Safety Report 5278719-2 (Version None)
Quarter: 2007Q1

REPORT INFORMATION
  Report Type: 
  Country: None (occurrence: None)
  Receive Date: 20070328
  Receipt Date: 20070312
  Transmission Date: 20070707
  Serious: Yes (Other)
  Sender: FDA-Public Use
  Company Number: US-SANOFI-SYNTHELABO-A03200702068

PATIENT
  Sex: Female

DRUGS (5)
  1. SEROQUEL [Concomitant]
     Dosage: UNK
     Route: 065
  2. SYNTHROID [Concomitant]
     Dosage: UNK
     Route: 065
  3. LITHOBID [Concomitant]
     Dosage: UNK
     Route: 065
  4. AMBIEN [Suspect]
     Indication: SOMNOLENCE
     Route: 048
     Dates: start: 19970101, end: 20060820
  5. AMBIEN [Suspect]
     Indication: MIDDLE INSOMNIA
     Route: 048
     Dates: start: 19970101, end: 20060820

REACTIONS (5)
  - AMNESIA [None]
  - EATING DISORDER [None]
  - IMPAIRED DRIVING ABILITY [None]
  - ROAD TRAFFIC ACCIDENT [None]
  - SLEEP WALKING [None]
